FAERS Safety Report 10068001 (Version 1)
Quarter: 2014Q2

REPORT INFORMATION
  Report Type: Spontaneous
  Country: GB (occurrence: GB)
  Receive Date: 20140409
  Receipt Date: 20140409
  Transmission Date: 20141212
  Serious: Yes (Death, Disabling)
  Sender: FDA-Public Use
  Company Number: GB-PFIZER INC-2014096593

PATIENT
  Age: 73 Year
  Sex: Male
  Weight: 108 kg

DRUGS (10)
  1. IRINOTECAN HCL [Suspect]
     Indication: COLORECTAL CANCER METASTATIC
     Dosage: 180 MG, CYCLIC
     Route: 042
     Dates: start: 20130626, end: 20130626
  2. IRINOTECAN HCL [Suspect]
     Dosage: 180 MG, CYCLIC
     Route: 042
     Dates: start: 20130904, end: 20130904
  3. FLUOROURACIL [Suspect]
     Indication: COLORECTAL CANCER METASTATIC
     Dosage: 400 MG, UNK
     Route: 042
     Dates: start: 20130626, end: 20130626
  4. FLUOROURACIL [Suspect]
     Dosage: 2400 MG, UNK
     Route: 042
     Dates: start: 20130626, end: 20130626
  5. FLUOROURACIL [Suspect]
     Dosage: 400 MG, UNK
     Route: 042
     Dates: start: 20130904, end: 20130904
  6. FLUOROURACIL [Suspect]
     Dosage: 2400 MG, UNK
     Route: 042
     Dates: start: 20130904, end: 20130904
  7. AFLIBERCEPT [Suspect]
     Indication: COLORECTAL CANCER METASTATIC
     Dosage: 4 MG/KG, CYCLIC
     Route: 042
     Dates: start: 20130626, end: 20130626
  8. AFLIBERCEPT [Suspect]
     Dosage: 4 MG/KG, CYCLIC
     Route: 042
     Dates: start: 20130904, end: 20130904
  9. FOLINIC ACID [Suspect]
     Indication: COLORECTAL CANCER METASTATIC
     Dosage: 350 MG, CYCLIC
     Route: 042
     Dates: start: 20130626, end: 20130626
  10. FOLINIC ACID [Suspect]
     Dosage: 350 MG, CYCLIC
     Route: 042
     Dates: start: 20130904, end: 20130904

REACTIONS (7)
  - Disease progression [Fatal]
  - Colorectal cancer metastatic [Fatal]
  - Diarrhoea [Recovered/Resolved]
  - Abdominal pain upper [Recovered/Resolved]
  - Fatigue [Recovered/Resolved]
  - Weight decreased [Recovered/Resolved]
  - Blood pressure increased [Recovered/Resolved]
